FAERS Safety Report 11073378 (Version 1)
Quarter: 2015Q2

REPORT INFORMATION
  Report Type: Report from Study
  Country: US (occurrence: US)
  Receive Date: 20150428
  Receipt Date: 20150428
  Transmission Date: 20150821
  Serious: Yes (Other)
  Sender: FDA-Public Use
  Company Number: US-BAYER-2015-117539

PATIENT
  Age: 67 Year
  Sex: Male

DRUGS (2)
  1. ZEVALIN (Y90) [Concomitant]
     Dosage: UNK
     Dates: start: 20150402
  2. STIVARGA [Suspect]
     Active Substance: REGORAFENIB
     Indication: RECTAL CANCER
     Dosage: 160 MG, DAILY
     Route: 048
     Dates: start: 20150302, end: 20150406

REACTIONS (7)
  - Pain [None]
  - Weight decreased [Not Recovered/Not Resolved]
  - Muscle strain [None]
  - Abdominal pain upper [None]
  - Gait disturbance [None]
  - Decreased appetite [Not Recovered/Not Resolved]
  - Injury [Not Recovered/Not Resolved]

NARRATIVE: CASE EVENT DATE: 20150406
